FAERS Safety Report 21712961 (Version 1)
Quarter: 2022Q4

REPORT INFORMATION
  Report Type: Spontaneous
  Country: US (occurrence: None)
  Receive Date: 20221208
  Receipt Date: 20221208
  Transmission Date: 20230112
  Serious: Yes (Hospitalization)
  Sender: FDA-Public Use
  Company Number: None

PATIENT
  Age: 75 Year
  Sex: Male
  Weight: 103 kg

DRUGS (1)
  1. SEMAGLUTIDE [Suspect]
     Active Substance: SEMAGLUTIDE
     Indication: Diabetes mellitus
     Dosage: 2 MG QWEEK SQ
     Route: 058
     Dates: start: 20190430, end: 20221116

REACTIONS (2)
  - Pancreatitis acute [None]
  - Escherichia infection [None]

NARRATIVE: CASE EVENT DATE: 20221116
